FAERS Safety Report 17950092 (Version 3)
Quarter: 2020Q4

REPORT INFORMATION
  Report Type: Report from Study
  Country: CA (occurrence: CA)
  Receive Date: 20200626
  Receipt Date: 20201114
  Transmission Date: 20210113
  Serious: Yes (Other)
  Sender: FDA-Public Use
  Company Number: PHHY2018CA091645

PATIENT
  Age: 86 Year
  Sex: Male

DRUGS (6)
  1. SANDOSTATIN [Suspect]
     Active Substance: OCTREOTIDE ACETATE
     Indication: CARCINOID TUMOUR
     Dosage: UNK UNK, TID  (UP 2 DAY POS LAR)
     Route: 058
     Dates: start: 20180731
  2. SANDOSTATIN [Suspect]
     Active Substance: OCTREOTIDE ACETATE
  3. SANDOSTATIN LAR DEPOT [Suspect]
     Active Substance: OCTREOTIDE ACETATE
     Indication: CARCINOID TUMOUR
     Dosage: 30 MG, QMO (EVERY 4 WEEKS)
     Route: 030
     Dates: start: 20180803
  4. SANDOSTATIN LAR DEPOT [Suspect]
     Active Substance: OCTREOTIDE ACETATE
  5. SANDOSTATIN [Suspect]
     Active Substance: OCTREOTIDE ACETATE
  6. SANDOSTATIN LAR DEPOT [Suspect]
     Active Substance: OCTREOTIDE ACETATE

REACTIONS (20)
  - Fall [Unknown]
  - Abdominal distension [Unknown]
  - Malaise [Unknown]
  - Abnormal faeces [Unknown]
  - Faeces soft [Unknown]
  - Pain in extremity [Unknown]
  - Constipation [Unknown]
  - Blood glucose increased [Recovered/Resolved]
  - Hepatic pain [Unknown]
  - Nasopharyngitis [Unknown]
  - Dyspnoea [Unknown]
  - Nasal congestion [Unknown]
  - Muscular weakness [Unknown]
  - Balance disorder [Unknown]
  - Blood pressure increased [Unknown]
  - Productive cough [Unknown]
  - Oropharyngeal pain [Unknown]
  - Pain [Unknown]
  - Faeces discoloured [Unknown]
  - Constipation [Recovered/Resolved]

NARRATIVE: CASE EVENT DATE: 20180803
